FAERS Safety Report 13020390 (Version 1)
Quarter: 2016Q4

REPORT INFORMATION
  Report Type: Spontaneous
  Country: US (occurrence: US)
  Receive Date: 20161212
  Receipt Date: 20161212
  Transmission Date: 20170207
  Serious: Yes (Other)
  Sender: FDA-Public Use
  Company Number: US-TEVA-719578USA

PATIENT
  Sex: Female

DRUGS (1)
  1. METOPROLOL. [Suspect]
     Active Substance: METOPROLOL

REACTIONS (6)
  - Eating disorder [Unknown]
  - Renal disorder [Unknown]
  - Renal hypertension [Unknown]
  - Abdominal discomfort [Unknown]
  - Product quality issue [Unknown]
  - Insomnia [Unknown]
